FAERS Safety Report 12123152 (Version 2)
Quarter: 2016Q1

REPORT INFORMATION
  Report Type: Report from Study
  Country: US (occurrence: US)
  Receive Date: 20160227
  Receipt Date: 20160302
  Transmission Date: 20160526
  Serious: Yes (Hospitalization, Other)
  Sender: FDA-Public Use
  Company Number: US-BRISTOL-MYERS SQUIBB COMPANY-BMS-2016-010250

PATIENT
  Age: 73 Year
  Sex: Female
  Weight: 58 kg

DRUGS (3)
  1. LEVOTHYROXINE. [Concomitant]
     Active Substance: LEVOTHYROXINE
     Indication: PRODUCT USED FOR UNKNOWN INDICATION
     Dosage: UNK
     Route: 065
     Dates: start: 20160209
  2. NIVOLUMAB [Suspect]
     Active Substance: NIVOLUMAB
     Indication: NON-SMALL CELL LUNG CANCER
     Dosage: UNK
     Route: 042
     Dates: start: 20141014
  3. IPILIMUMAB [Suspect]
     Active Substance: IPILIMUMAB
     Indication: NON-SMALL CELL LUNG CANCER
     Dosage: UNK
     Route: 042
     Dates: start: 20141014

REACTIONS (4)
  - Dehydration [Not Recovered/Not Resolved]
  - Back pain [Not Recovered/Not Resolved]
  - Lumbar vertebral fracture [Not Recovered/Not Resolved]
  - Lumbar vertebral fracture [Not Recovered/Not Resolved]

NARRATIVE: CASE EVENT DATE: 20160103
